FAERS Safety Report 4358942-1 (Version None)
Quarter: 2004Q2

REPORT INFORMATION
  Report Type: 
  Country: None (occurrence: None)
  Receive Date: 20040511
  Receipt Date: 20040503
  Transmission Date: 20050107
  Serious: No
  Sender: FDA-Public Use
  Company Number: 2004SE02535

PATIENT
  Age: 48 Year
  Sex: Male

DRUGS (2)
  1. ZOLADEX [Suspect]
     Indication: PROSTATE CANCER
     Dates: start: 19920422, end: 19920714
  2. EULEXIN [Suspect]
     Indication: PROSTATE CANCER
     Dosage: 250 MG TID PO
     Route: 048
     Dates: start: 19920422, end: 19920714

REACTIONS (2)
  - HEPATIC ENZYME INCREASED [None]
  - HEPATIC FUNCTION ABNORMAL [None]
